FAERS Safety Report 24183101 (Version 2)
Quarter: 2024Q4

REPORT INFORMATION
  Report Type: Other
  Country: CA (occurrence: CA)
  Receive Date: 20240807
  Receipt Date: 20241127
  Transmission Date: 20250115
  Serious: Yes (Death)
  Sender: ALVOGEN
  Company Number: CA-ALVOGEN-2024095208

PATIENT
  Age: 62 Year
  Sex: Female

DRUGS (5)
  1. FENTANYL [Suspect]
     Active Substance: FENTANYL
     Indication: Product used for unknown indication
  2. COCAINE [Suspect]
     Active Substance: COCAINE
     Indication: Product used for unknown indication
     Dosage: PATIENT HAD SMOKED CRACK COCAINE THE PREVIOUS EVENING OF DEATH
  3. BENZOYLECGONINE [Suspect]
     Active Substance: BENZOYLECGONINE
     Indication: Product used for unknown indication
  4. METHAMPHETAMINE [Suspect]
     Active Substance: METHAMPHETAMINE
     Indication: Product used for unknown indication
  5. ALCOHOL [Suspect]
     Active Substance: ALCOHOL
     Indication: Product used for unknown indication

REACTIONS (2)
  - Toxicity to various agents [Fatal]
  - Accident [Fatal]
